FAERS Safety Report 7580775-3 (Version None)
Quarter: 2011Q2

REPORT INFORMATION
  Report Type: 
  Country: None (occurrence: None)
  Receive Date: 20110629
  Receipt Date: 20110621
  Transmission Date: 20111010
  Serious: Yes (Other)
  Sender: FDA-Public Use
  Company Number: US-JNJFOC-20110610932

PATIENT
  Age: 19 Year
  Sex: Female
  Weight: 50.35 kg

DRUGS (5)
  1. LISTERINE TOTAL CARE ANTICAVITY MOUTHWASH CINNAMINT [Suspect]
     Indication: DENTAL DISORDER PROPHYLAXIS
     Route: 048
     Dates: start: 20110526
  2. MICROGESTIN 1.5/30 [Concomitant]
     Indication: CONTRACEPTION
     Route: 065
     Dates: start: 20101101
  3. RESTORIL [Concomitant]
     Indication: SLEEP DISORDER THERAPY
     Route: 065
     Dates: start: 20110401
  4. LAMICTAL [Concomitant]
     Indication: BIPOLAR I DISORDER
     Route: 065
     Dates: start: 20110301
  5. LUVOX [Concomitant]
     Indication: OBSESSIVE-COMPULSIVE DISORDER
     Route: 065
     Dates: start: 20110401

REACTIONS (2)
  - ORAL DISCOMFORT [None]
  - ORAL MUCOSAL EXFOLIATION [None]
